FAERS Safety Report 18204842 (Version 1)
Quarter: 2020Q3

REPORT INFORMATION
  Report Type: Spontaneous
  Country: DE (occurrence: DE)
  Receive Date: 20200827
  Receipt Date: 20200827
  Transmission Date: 20201103
  Serious: Yes (Hospitalization, Other)
  Sender: FDA-Public Use
  Company Number: NVSC2020DE236803

PATIENT
  Age: 59 Year
  Sex: Male

DRUGS (3)
  1. HALOPERIDOL. [Suspect]
     Active Substance: HALOPERIDOL
     Indication: MAJOR DEPRESSION
     Dosage: 10 MG, QD
     Route: 065
  2. CHLORPROTHIXENE [Suspect]
     Active Substance: CHLORPROTHIXENE
     Indication: MAJOR DEPRESSION
     Dosage: 150 MG, QD
     Route: 065
  3. AMITRIPTYLINE [Suspect]
     Active Substance: AMITRIPTYLINE
     Indication: MAJOR DEPRESSION
     Dosage: 150 MG, QD
     Route: 065

REACTIONS (2)
  - Tardive dyskinesia [Not Recovered/Not Resolved]
  - Akathisia [Not Recovered/Not Resolved]
